FAERS Safety Report 8818444 (Version 2)
Quarter: 2012Q4

REPORT INFORMATION
  Report Type: 
  Country: FR (occurrence: FR)
  Receive Date: 20121001
  Receipt Date: 20121019
  Transmission Date: 20130627
  Serious: Yes (Death, Hospitalization, Other)
  Sender: FDA-Public Use
  Company Number: FR-ELI_LILLY_AND_COMPANY-FR201209007177

PATIENT
  Age: 75 Year
  Sex: Female
  Weight: 56 kg

DRUGS (5)
  1. FORSTEO [Suspect]
     Indication: OSTEOPOROSIS
     Dosage: 20 ug, qd
     Route: 058
     Dates: start: 20110620, end: 20120717
  2. FENOFIBRATE [Concomitant]
     Indication: HYPERCHOLESTEROLAEMIA
     Dosage: 160 mg, UNK
     Dates: end: 201208
  3. PAROXETINE [Concomitant]
     Indication: DEPRESSION
     Dosage: 20 mg, UNK
  4. TENORMINE [Concomitant]
     Indication: HYPERTENSION
     Dosage: 100 mg, UNK
     Dates: end: 201208
  5. SPIRONOLACTONE ALTIZIDE BIOGARAN [Concomitant]
     Indication: HYPERTENSION
     Dosage: 15 mg, UNK
     Dates: start: 201208

REACTIONS (4)
  - Cerebrovascular accident [Fatal]
  - Hospitalisation [Unknown]
  - Adverse event [Unknown]
  - Cerebral atrophy [Unknown]
